FAERS Safety Report 8235819-2 (Version None)
Quarter: 2012Q1

REPORT INFORMATION
  Report Type: 
  Country: None (occurrence: None)
  Receive Date: 20120326
  Receipt Date: 20120320
  Transmission Date: 20120608
  Serious: Yes (Death)
  Sender: FDA-Public Use
  Company Number: US-CELGENEUS-163-50794-12032418

PATIENT

DRUGS (4)
  1. VIDAZA [Suspect]
     Dosage: 75 MILLIGRAM/SQ. METER
     Route: 041
  2. REVLIMID [Suspect]
     Dosage: 10MG,15 MG, 20MG, 25MG, 50MG, 75MG
     Route: 048
  3. VIDAZA [Suspect]
  4. REVLIMID [Suspect]

REACTIONS (7)
  - DECREASED APPETITE [None]
  - RASH [None]
  - DEATH [None]
  - FATIGUE [None]
  - CONSTIPATION [None]
  - PYREXIA [None]
  - WEIGHT DECREASED [None]
